FAERS Safety Report 10426915 (Version 2)
Quarter: 2014Q3

REPORT INFORMATION
  Report Type: Spontaneous
  Country: FR (occurrence: FR)
  Receive Date: 20140903
  Receipt Date: 20140916
  Transmission Date: 20150326
  Serious: Yes (Death, Hospitalization)
  Sender: FDA-Public Use
  Company Number: FR-009507513-1408FRA016859

PATIENT
  Age: 60 Year
  Sex: Female

DRUGS (14)
  1. JANUMET [Suspect]
     Active Substance: METFORMIN HYDROCHLORIDE\SITAGLIPTIN PHOSPHATE
     Dosage: 1 DF, BID
     Route: 048
     Dates: end: 20140723
  2. DIAMICRON [Concomitant]
     Active Substance: GLICLAZIDE
     Dosage: 90 MG, QD
     Route: 048
  3. PYOSTACINE [Concomitant]
     Active Substance: PRISTINAMYCIN
     Dosage: 2 DF, BID
     Route: 048
     Dates: start: 20140718, end: 20140720
  4. LEVOTHYROX [Concomitant]
     Active Substance: LEVOTHYROXINE
     Dosage: 125 MICROGRAM, QD
     Route: 048
  5. PERINDOPRIL [Concomitant]
     Active Substance: PERINDOPRIL
     Dosage: 2 MG, QD
     Route: 048
  6. HEMIGOXINE NATIVELLE [Concomitant]
     Active Substance: DIGOXIN
     Dosage: 0.125 MG, QD
     Route: 048
  7. LAMALINE [Concomitant]
     Active Substance: ACETAMINOPHEN\CAFFEINE\OPIUM
     Dosage: UNK, PRN
     Route: 048
  8. GLUCOPHAGE [Suspect]
     Active Substance: METFORMIN HYDROCHLORIDE
     Dosage: 850 MG, QD
     Route: 048
     Dates: end: 20140723
  9. ALDACTONE [Concomitant]
     Active Substance: SPIRONOLACTONE
     Dosage: 25 MG, QD
     Route: 048
  10. NAPROXEN. [Concomitant]
     Active Substance: NAPROXEN
     Dosage: 2 DF, QD
     Route: 048
     Dates: start: 20140718
  11. CARDENSIEL [Concomitant]
     Active Substance: BISOPROLOL FUMARATE
     Dosage: 1.25 MG, QD
     Route: 048
  12. OFLOCET (OFLOXACIN) [Concomitant]
     Active Substance: OFLOXACIN
     Dosage: 200 MG, QD
     Dates: start: 20140704
  13. PRIMPERAN [Concomitant]
     Active Substance: METOCLOPRAMIDE HYDROCHLORIDE
     Dosage: UNK, PRN
     Route: 048
     Dates: start: 20140721
  14. MINISINTROM [Concomitant]
     Active Substance: ACENOCOUMAROL
     Dosage: 0.25 MG, QD
     Route: 048

REACTIONS (2)
  - Lactic acidosis [Fatal]
  - Drug level increased [Fatal]

NARRATIVE: CASE EVENT DATE: 20140723
